FAERS Safety Report 13668831 (Version 7)
Quarter: 2019Q1

REPORT INFORMATION
  Report Type: Report from Study
  Country: KR (occurrence: KR)
  Receive Date: 20170620
  Receipt Date: 20190111
  Transmission Date: 20190417
  Serious: Yes (Hospitalization)
  Sender: FDA-Public Use
  Company Number: KR-ROCHE-1952431

PATIENT
  Age: 49 Year
  Sex: Female
  Weight: 54.5 kg

DRUGS (13)
  1. SOLONDO [Concomitant]
     Active Substance: PREDNISOLONE
  2. GASTER (SOUTH KOREA) [Concomitant]
     Route: 048
     Dates: start: 20170622
  3. PHAZYME [Concomitant]
     Active Substance: DIMETHICONE 410
     Route: 048
     Dates: start: 20170622
  4. ATEZOLIZUMAB. [Suspect]
     Active Substance: ATEZOLIZUMAB
     Indication: TRANSITIONAL CELL CARCINOMA
     Dosage: MOST RECENT DOSE PRIOR TO THE EVENT: 02/JUN/2017 STARTING AT 16:23
     Route: 042
     Dates: start: 20170602
  5. DIABEX [Concomitant]
     Active Substance: METFORMIN HYDROCHLORIDE
     Indication: DIABETES MELLITUS
     Route: 048
     Dates: start: 2014
  6. BETMIGA [Concomitant]
     Active Substance: MIRABEGRON
     Indication: URINE FLOW DECREASED
     Route: 048
     Dates: start: 20170419, end: 20170808
  7. TASNA [Concomitant]
     Indication: ELECTROLYTE IMBALANCE
     Route: 048
     Dates: start: 20170419
  8. JANUVIA [Concomitant]
     Active Substance: SITAGLIPTIN PHOSPHATE
     Indication: DIABETES MELLITUS
     Route: 048
     Dates: start: 2014
  9. IMIPRAMINE [Concomitant]
     Active Substance: IMIPRAMINE
     Indication: URINE FLOW DECREASED
     Route: 048
     Dates: start: 20170419, end: 20170523
  10. GASTER (SOUTH KOREA) [Concomitant]
     Indication: PROPHYLAXIS
     Route: 048
     Dates: start: 20170228
  11. GLIMEL (SOUTH KOREA) [Concomitant]
     Indication: DIABETES MELLITUS
     Route: 048
     Dates: start: 2014
  12. CRESTOR [Concomitant]
     Active Substance: ROSUVASTATIN CALCIUM
     Indication: HYPERLIPIDAEMIA
     Route: 048
     Dates: start: 2016
  13. VESICARE [Concomitant]
     Active Substance: SOLIFENACIN SUCCINATE
     Indication: URINE FLOW DECREASED
     Route: 048
     Dates: start: 20170526

REACTIONS (1)
  - Systemic immune activation [Recovered/Resolved]

NARRATIVE: CASE EVENT DATE: 20170615
